FAERS Safety Report 4845900-3 (Version None)
Quarter: 2005Q4

REPORT INFORMATION
  Report Type: 
  Country: None (occurrence: None)
  Receive Date: 20051206
  Receipt Date: 20051130
  Transmission Date: 20060501
  Serious: Yes (Hospitalization, Other)
  Sender: FDA-Public Use
  Company Number: TR-AVENTIS-200520579GDDC

PATIENT
  Age: 62 Year
  Sex: Female

DRUGS (2)
  1. RIFAMPIN [Suspect]
     Indication: BRUCELLOSIS
  2. DOXYCYCLINE [Suspect]

REACTIONS (7)
  - ARTHRITIS [None]
  - ERYTHEMA [None]
  - LUPUS-LIKE SYNDROME [None]
  - PAIN IN JAW [None]
  - PYREXIA [None]
  - SWELLING [None]
  - TENDERNESS [None]
